FAERS Safety Report 12131669 (Version 1)
Quarter: 2016Q1

REPORT INFORMATION
  Report Type: Spontaneous
  Country: US (occurrence: US)
  Receive Date: 20160301
  Receipt Date: 20160301
  Transmission Date: 20160526
  Serious: Yes (Hospitalization)
  Sender: FDA-Public Use
  Company Number: US-IPCA LABORATORIES LIMITED-IPC201602-000267

PATIENT
  Age: 43 Year
  Sex: Male

DRUGS (1)
  1. HYDROCHLOROTHIAZIDE. [Suspect]
     Active Substance: HYDROCHLOROTHIAZIDE

REACTIONS (2)
  - Hypertriglyceridaemia [Recovered/Resolved]
  - Pancreatitis acute [Recovered/Resolved]
